FAERS Safety Report 8192512 (Version 2)
Quarter: 2013Q1

REPORT INFORMATION
  Report Type: Spontaneous
  Country: US (occurrence: US)
  Receive Date: 20111020
  Receipt Date: 20130108
  Transmission Date: 20140127
  Serious: Yes (Other)
  Sender: FDA-Public Use
  Company Number: US-ASTRAZENECA-2011SE61259

PATIENT
  Age: 51 Year
  Sex: Female
  Weight: 92.5 kg

DRUGS (5)
  1. NEXIUM [Suspect]
     Indication: ABDOMINAL DISCOMFORT
     Route: 048
  2. ARIMIDEX [Suspect]
     Indication: NEOPLASM MALIGNANT
     Route: 048
     Dates: start: 2007
  3. BENICAR [Concomitant]
     Indication: HYPERTENSION
     Dosage: 40-25, ONE IN THE MORNING
  4. ZOLOFT [Concomitant]
     Indication: ANTIDEPRESSANT THERAPY
  5. ALPRAZOLAM [Concomitant]
     Indication: ANTIDEPRESSANT THERAPY

REACTIONS (3)
  - Breast cancer [Unknown]
  - Lymphoma [Unknown]
  - Diabetes mellitus [Unknown]
